FAERS Safety Report 11093668 (Version 1)
Quarter: 2015Q2

REPORT INFORMATION
  Report Type: Report from Study
  Country: JP (occurrence: JP)
  Receive Date: 20150506
  Receipt Date: 20150506
  Transmission Date: 20150821
  Serious: Yes (Death, Other)
  Sender: FDA-Public Use
  Company Number: JP-JNJFOC-20150422866

PATIENT
  Age: 39 Year

DRUGS (1)
  1. DOXIL [Suspect]
     Active Substance: DOXORUBICIN HYDROCHLORIDE
     Indication: KAPOSI^S SARCOMA AIDS RELATED
     Dosage: 1 COURSE
     Route: 042
     Dates: start: 20111017, end: 20111017

REACTIONS (6)
  - White blood cell count decreased [Unknown]
  - Renal impairment [Unknown]
  - Death [Fatal]
  - Liver disorder [Unknown]
  - Anaemia [Unknown]
  - Platelet count decreased [Unknown]
